FAERS Safety Report 10674243 (Version 1)
Quarter: 2014Q4

REPORT INFORMATION
  Report Type: Spontaneous
  Country: US (occurrence: None)
  Receive Date: 20141209
  Receipt Date: 20141209
  Transmission Date: 20150529
  Serious: Yes (Other)
  Sender: FDA-Public Use
  Company Number: 414036

PATIENT
  Age: 55 Year
  Sex: Male
  Weight: 96.4 kg

DRUGS (2)
  1. NOVOLOG [Suspect]
     Active Substance: INSULIN ASPART
     Indication: TYPE 1 DIABETES MELLITUS
     Dosage: 100 U
     Route: 058
     Dates: start: 200111
  2. LANTUS [Concomitant]
     Active Substance: INSULIN GLARGINE

REACTIONS (2)
  - Incorrect dose administered [None]
  - Hypoglycaemic seizure [None]

NARRATIVE: CASE EVENT DATE: 20140605
